FAERS Safety Report 7218692-0 (Version None)
Quarter: 2011Q1

REPORT INFORMATION
  Report Type: 
  Country: None (occurrence: None)
  Receive Date: 20110110
  Receipt Date: 20100928
  Transmission Date: 20110831
  Serious: No
  Sender: FDA-Public Use
  Company Number: US-ABBOTT-10P-163-0676268-00

PATIENT
  Sex: Female
  Weight: 59.02 kg

DRUGS (2)
  1. CERVOXONE [Concomitant]
     Indication: PRODUCT USED FOR UNKNOWN INDICATION
  2. VICODIN [Suspect]
     Indication: BACK PAIN
     Dates: end: 20100901

REACTIONS (1)
  - DRUG ABUSE [None]
